FAERS Safety Report 9142395 (Version 2)
Quarter: 2013Q1

REPORT INFORMATION
  Report Type: Spontaneous
  Country: US (occurrence: US)
  Receive Date: 20130306
  Receipt Date: 20130319
  Transmission Date: 20140127
  Serious: Yes (Hospitalization)
  Sender: FDA-Public Use
  Company Number: US-BIOGENIDEC-2013BI020648

PATIENT
  Age: 57 Year
  Sex: Female

DRUGS (1)
  1. TYSABRI [Suspect]
     Indication: MULTIPLE SCLEROSIS
     Route: 042
     Dates: start: 20080821

REACTIONS (5)
  - Cervical spinal stenosis [Recovered/Resolved]
  - Back injury [Recovered/Resolved]
  - Intervertebral disc protrusion [Recovered/Resolved]
  - Spinal disorder [Recovered/Resolved]
  - Gait disturbance [Not Recovered/Not Resolved]
